FAERS Safety Report 6958394-9 (Version None)
Quarter: 2010Q3

REPORT INFORMATION
  Report Type: 
  Country: None (occurrence: None)
  Receive Date: 20100830
  Receipt Date: 20100830
  Transmission Date: 20110219
  Serious: Yes (Hospitalization)
  Sender: FDA-Public Use
  Company Number: None

PATIENT
  Sex: Male
  Weight: 74.1 kg

DRUGS (5)
  1. PEG-L-ASPARAGINASE (K-H) [Suspect]
     Dosage: 4500 MILLION IU
  2. METHYLPREDNISOLONE [Suspect]
     Dosage: 112 MG
  3. DAUNORUBICIN HCL [Suspect]
     Dosage: 180 MG
  4. ALLOPURINOL [Suspect]
     Dosage: 8700 MG
  5. VINCRISTINE SULFATE [Suspect]
     Dosage: 8 MG

REACTIONS (1)
  - HYPERGLYCAEMIA [None]
